FAERS Safety Report 5076543-7 (Version None)
Quarter: 2006Q3

REPORT INFORMATION
  Report Type: 
  Country: None (occurrence: None)
  Receive Date: 20060807
  Receipt Date: 20060725
  Transmission Date: 20061208
  Serious: Yes (Hospitalization)
  Sender: FDA-Public Use
  Company Number: 2006091529

PATIENT
  Age: 21 Year
  Sex: Female

DRUGS (8)
  1. CLINDAMYCIN PHOSPHATE [Suspect]
     Indication: ACNE
     Dosage: 1 DOSAGE FORM (DAILY), TOPICAL
     Route: 061
     Dates: start: 20060210, end: 20060529
  2. CEFACLOR [Concomitant]
  3. CAMPHOR (CAMPHOR) [Concomitant]
  4. HICEE (ASCORBIC ACID) [Concomitant]
  5. TOCOPHEROL (TOCOPHEROL) [Concomitant]
  6. ALENDRONATE SODIUM [Concomitant]
  7. PREDNISOLONE [Concomitant]
  8. METHYCOBAL (MECOBALAMIN) [Concomitant]

REACTIONS (3)
  - ERYTHEMA [None]
  - FACIAL PAIN [None]
  - SWELLING FACE [None]
